FAERS Safety Report 24375372 (Version 3)
Quarter: 2024Q4

REPORT INFORMATION
  Report Type: Spontaneous
  Country: US (occurrence: US)
  Receive Date: 20240928
  Receipt Date: 20241126
  Transmission Date: 20250115
  Serious: No
  Sender: SANOFI AVENTIS
  Company Number: US-SA-2024SA274190

PATIENT
  Age: 35 Year
  Sex: Female

DRUGS (1)
  1. DUPIXENT [Suspect]
     Active Substance: DUPILUMAB
     Indication: Dermatitis atopic
     Dosage: 300 MG, QOW
     Route: 058
     Dates: start: 202406

REACTIONS (9)
  - Skin hyperpigmentation [Unknown]
  - Facial pain [Unknown]
  - Peripheral swelling [Unknown]
  - Hand dermatitis [Unknown]
  - Rash pruritic [Unknown]
  - Skin exfoliation [Unknown]
  - Skin burning sensation [Unknown]
  - Rash erythematous [Unknown]
  - Therapeutic response decreased [Unknown]

NARRATIVE: CASE EVENT DATE: 20240101
